FAERS Safety Report 18345324 (Version 1)
Quarter: 2020Q4

REPORT INFORMATION
  Report Type: Spontaneous
  Country: FR (occurrence: FR)
  Receive Date: 20201005
  Receipt Date: 20201005
  Transmission Date: 20210114
  Serious: Yes (Other)
  Sender: FDA-Public Use
  Company Number: FR-SUN PHARMACEUTICAL INDUSTRIES LTD-2020RR-263371

PATIENT
  Age: 32 Year
  Sex: Female

DRUGS (1)
  1. TRAMADOL. [Suspect]
     Active Substance: TRAMADOL
     Indication: DRUG ABUSE
     Dosage: JUSQU^ A 6/JOUR ()
     Route: 048
     Dates: start: 2019

REACTIONS (4)
  - Loss of consciousness [Recovered/Resolved]
  - Withdrawal syndrome [Recovered/Resolved]
  - Drug abuse [Not Recovered/Not Resolved]
  - Seizure [Recovered/Resolved]

NARRATIVE: CASE EVENT DATE: 20200817
